FAERS Safety Report 7675460-3 (Version None)
Quarter: 2011Q3

REPORT INFORMATION
  Report Type: 
  Country: None (occurrence: None)
  Receive Date: 20110810
  Receipt Date: 20110805
  Transmission Date: 20111222
  Serious: Yes (Other)
  Sender: FDA-Public Use
  Company Number: BR-PFIZER INC-2011180917

PATIENT
  Sex: Female

DRUGS (3)
  1. VARENICLINE TARTRATE [Suspect]
     Dosage: 0.5 MG, 2X/DAY
     Route: 048
     Dates: start: 20110522, end: 20110525
  2. VARENICLINE TARTRATE [Suspect]
     Dosage: 0.5 MG, 1X/DAY IN THE MORNING
     Route: 048
     Dates: start: 20110519, end: 20110521
  3. VARENICLINE TARTRATE [Suspect]
     Dosage: 1 MG, 2X/DAY
     Dates: start: 20110526, end: 20110620

REACTIONS (10)
  - DEPRESSION [None]
  - TREMOR [None]
  - NIGHT SWEATS [None]
  - CARDIAC DISORDER [None]
  - HYPERHIDROSIS [None]
  - TACHYCARDIA [None]
  - NAUSEA [None]
  - FEELING COLD [None]
  - INSOMNIA [None]
  - FEAR [None]
